FAERS Safety Report 18712505 (Version 1)
Quarter: 2021Q1

REPORT INFORMATION
  Report Type: Spontaneous
  Country: ES (occurrence: ES)
  Receive Date: 20210107
  Receipt Date: 20210107
  Transmission Date: 20210419
  Serious: Yes (Other)
  Sender: FDA-Public Use
  Company Number: NVSC2021ES000914

PATIENT
  Age: 57 Year
  Sex: Male
  Weight: 105.7 kg

DRUGS (10)
  1. LEVOFLOXACIN. [Concomitant]
     Active Substance: LEVOFLOXACIN
     Dosage: 500 MG
     Route: 042
     Dates: start: 20200327
  2. BETAFERON [Concomitant]
     Active Substance: INTERFERON BETA-1B
     Dosage: 250 ?G/KG
     Route: 003
     Dates: start: 20200326
  3. LOPINAVIR + RITONAVIR [Concomitant]
     Active Substance: LOPINAVIR\RITONAVIR
     Indication: COVID-19
     Dosage: 400 MG
     Route: 048
     Dates: start: 20200313
  4. TOCILIZUMAB. [Concomitant]
     Active Substance: TOCILIZUMAB
     Indication: COVID-19
     Dosage: 800 MG
     Route: 042
     Dates: start: 20200314
  5. BETAFERON [Concomitant]
     Active Substance: INTERFERON BETA-1B
     Indication: COVID-19
     Dosage: 250 ?G/KG
     Route: 003
     Dates: start: 20200314
  6. HYDROXYCHLOROQUINE [Suspect]
     Active Substance: HYDROXYCHLOROQUINE
     Indication: COVID-19
     Dosage: 400 MG PRIMER DIA, DESPUES 200 MG
     Route: 048
     Dates: start: 20200315
  7. LEVOFLOXACIN. [Concomitant]
     Active Substance: LEVOFLOXACIN
     Indication: PNEUMONIA
     Dosage: 500 MG
     Route: 042
     Dates: start: 20200314
  8. TOCILIZUMAB. [Concomitant]
     Active Substance: TOCILIZUMAB
     Dosage: 800 MG
     Route: 042
     Dates: start: 20200316
  9. HYDROXYCHLOROQUINE [Suspect]
     Active Substance: HYDROXYCHLOROQUINE
     Dosage: 400 MG PRIMER DIA, DESPUES 200 MG
     Route: 048
     Dates: start: 20200327
  10. LOPINAVIR + RITONAVIR [Concomitant]
     Active Substance: LOPINAVIR\RITONAVIR
     Dosage: 400 MG
     Route: 048
     Dates: start: 20200327

REACTIONS (1)
  - Haemolytic anaemia [Recovered/Resolved]

NARRATIVE: CASE EVENT DATE: 20200324
